FAERS Safety Report 17400339 (Version 1)
Quarter: 2020Q1

REPORT INFORMATION
  Report Type: Spontaneous
  Country: US (occurrence: US)
  Receive Date: 20200211
  Receipt Date: 20200211
  Transmission Date: 20200409
  Serious: No
  Sender: FDA-Public Use
  Company Number: US-BIOGEN-2020BI00837479

PATIENT
  Sex: Male

DRUGS (5)
  1. TECFIDERA [Suspect]
     Active Substance: DIMETHYL FUMARATE
     Indication: MULTIPLE SCLEROSIS
     Dosage: TAKE 1 CAPSULE BY MOUTH TWICE A DAY
     Route: 048
  2. GABAPENTIN. [Concomitant]
     Active Substance: GABAPENTIN
     Route: 065
  3. TARTARIC ACID [Concomitant]
     Active Substance: TARTARIC ACID
     Route: 065
  4. LOSARTAN POTASSIUM. [Concomitant]
     Active Substance: LOSARTAN POTASSIUM
     Route: 065
  5. METOPROLOL. [Concomitant]
     Active Substance: METOPROLOL
     Route: 065

REACTIONS (5)
  - Drug ineffective [Unknown]
  - Asthenia [Not Recovered/Not Resolved]
  - Balance disorder [Not Recovered/Not Resolved]
  - Flushing [Recovered/Resolved with Sequelae]
  - Gait inability [Not Recovered/Not Resolved]
